FAERS Safety Report 13045658 (Version 1)
Quarter: 2016Q4

REPORT INFORMATION
  Report Type: Spontaneous
  Country: US (occurrence: US)
  Receive Date: 20161220
  Receipt Date: 20161220
  Transmission Date: 20170207
  Serious: No
  Sender: FDA-Public Use
  Company Number: US-DRREDDYS-DRL/USA/16/0078963

PATIENT
  Sex: Female

DRUGS (1)
  1. PRAVASTATIN SODIUM 40 MG [Suspect]
     Active Substance: PRAVASTATIN SODIUM
     Indication: PRODUCT USED FOR UNKNOWN INDICATION
     Dosage: TAKEN 4 DOSES
     Route: 065
     Dates: start: 20160323

REACTIONS (2)
  - Nightmare [Unknown]
  - Product quality issue [Unknown]
